FAERS Safety Report 13942724 (Version 3)
Quarter: 2017Q3

REPORT INFORMATION
  Report Type: Spontaneous
  Country: IT (occurrence: IT)
  Receive Date: 20170906
  Receipt Date: 20170922
  Transmission Date: 20171127
  Serious: Yes (Hospitalization, Other)
  Sender: FDA-Public Use
  Company Number: IT-B.I. PHARMACEUTICALS,INC./RIDGEFIELD-2017-BI-047715

PATIENT
  Age: 81 Year
  Sex: Male

DRUGS (4)
  1. GILOTRIF [Suspect]
     Active Substance: AFATINIB
     Indication: LUNG CARCINOMA CELL TYPE UNSPECIFIED STAGE IV
     Route: 048
     Dates: start: 20170713
  2. GILOTRIF [Suspect]
     Active Substance: AFATINIB
     Dosage: START DATE: 19-AUG
     Route: 065
  3. TACHIPIRINA [Concomitant]
     Active Substance: ACETAMINOPHEN
     Indication: PRODUCT USED FOR UNKNOWN INDICATION
     Route: 048
  4. GILOTRIF [Suspect]
     Active Substance: AFATINIB
     Route: 065
     Dates: start: 20170731

REACTIONS (10)
  - Diarrhoea [Unknown]
  - Jaundice [Unknown]
  - Furuncle [Unknown]
  - Hepatotoxicity [Unknown]
  - Acute hepatic failure [Unknown]
  - Paronychia [Unknown]
  - Gastrointestinal toxicity [Unknown]
  - Folliculitis [Unknown]
  - Rash [Unknown]
  - Skin toxicity [Not Recovered/Not Resolved]

NARRATIVE: CASE EVENT DATE: 20170817
